FAERS Safety Report 8788614 (Version 1)
Quarter: 2012Q4

REPORT INFORMATION
  Report Type: 
  Country: US (occurrence: US)
  Receive Date: 20120917
  Receipt Date: 20120917
  Transmission Date: 20130627
  Serious: No
  Sender: FDA-Public Use
  Company Number: US-009507513-1208USA008320

PATIENT

DRUGS (1)
  1. NUVARING [Suspect]
     Indication: CONTRACEPTION
     Dosage: one Nuvaring inserted vaginally continuously for three weeks and then removed for a one week break
     Route: 067
     Dates: start: 2011, end: 20120627

REACTIONS (1)
  - Breast enlargement [Not Recovered/Not Resolved]
